FAERS Safety Report 8959664 (Version 1)
Quarter: 2012Q4

REPORT INFORMATION
  Report Type: 
  Country: US (occurrence: US)
  Receive Date: 20121212
  Receipt Date: 20121212
  Transmission Date: 20130627
  Serious: No
  Sender: FDA-Public Use
  Company Number: US-009507513-1212USA003124

PATIENT
  Sex: Female

DRUGS (3)
  1. VICTRELIS [Suspect]
     Indication: HEPATITIS C
     Dosage: 200 mg
     Route: 048
  2. RIBAVIRIN [Suspect]
     Dosage: UNK
     Route: 048
  3. PEGASYS [Suspect]

REACTIONS (1)
  - Depression [Unknown]
